FAERS Safety Report 6696396-0 (Version None)
Quarter: 2010Q2

REPORT INFORMATION
  Report Type: 
  Country: None (occurrence: None)
  Receive Date: 20100421
  Receipt Date: 20100409
  Transmission Date: 20101027
  Serious: Yes (Hospitalization, Other)
  Sender: FDA-Public Use
  Company Number: 2010SP015918

PATIENT
  Age: 74 Year
  Sex: Male

DRUGS (10)
  1. MIRTAZAPINE [Suspect]
     Indication: DEPRESSION
     Dosage: 15 MG;QD;PO
     Route: 048
     Dates: start: 20100215
  2. CARBIDOPA-LEVODOPA [Concomitant]
  3. PRAMIPEXOLE DIHYDROCHLORIDE [Concomitant]
  4. TANDOSPIRONE CITRATE [Concomitant]
  5. IMIDAPRIL HYDROCHLORIDE [Concomitant]
  6. AMLODIPINE BESYLATE [Concomitant]
  7. LANSOPRAZOLE [Concomitant]
  8. PRAVASTATIN SODIUM [Concomitant]
  9. AMITRIPTYLINE HYDROCHLORIDE [Concomitant]
  10. AMBROXOL HYDROCHLORIDE [Concomitant]

REACTIONS (4)
  - CONSTIPATION [None]
  - DEFAECATION URGENCY [None]
  - PNEUMONIA [None]
  - SYNCOPE [None]
